FAERS Safety Report 17066630 (Version 1)
Quarter: 2019Q4

REPORT INFORMATION
  Report Type: Report from Study
  Country: GB (occurrence: GB)
  Receive Date: 20191122
  Receipt Date: 20191122
  Transmission Date: 20200122
  Serious: Yes (Other)
  Sender: FDA-Public Use
  Company Number: GB-LEXICON PHARMACEUTICALS, INC-19-1606-01050

PATIENT
  Sex: Male

DRUGS (2)
  1. SOMATULINE [Suspect]
     Active Substance: LANREOTIDE ACETATE
     Indication: NEUROENDOCRINE TUMOUR
     Route: 065
     Dates: start: 20180315, end: 20190301
  2. XERMELO [Suspect]
     Active Substance: TELOTRISTAT ETHYL
     Indication: NEUROENDOCRINE TUMOUR
     Route: 065
     Dates: start: 20180315, end: 20190301

REACTIONS (2)
  - Off label use [Unknown]
  - Disease progression [Unknown]
